FAERS Safety Report 19527422 (Version 1)
Quarter: 2021Q3

REPORT INFORMATION
  Report Type: Spontaneous
  Country: US (occurrence: US)
  Receive Date: 20210713
  Receipt Date: 20210713
  Transmission Date: 20211014
  Serious: No
  Sender: FDA-Public Use
  Company Number: None

PATIENT
  Age: 66 Year
  Sex: Female
  Weight: 90 kg

DRUGS (11)
  1. AZELASTINE. [Concomitant]
     Active Substance: AZELASTINE HYDROCHLORIDE
  2. VITAMIN D2 [Concomitant]
     Active Substance: ERGOCALCIFEROL
  3. LEVOTHYROXIN [Concomitant]
     Active Substance: LEVOTHYROXINE
  4. VENLAFAXINE [Concomitant]
     Active Substance: VENLAFAXINE HYDROCHLORIDE
  5. CENTRUM SILVER [Concomitant]
     Active Substance: MINERALS\VITAMINS
  6. FLONASE [Concomitant]
     Active Substance: FLUTICASONE PROPIONATE
  7. KETOCONAZOLE CREAM 2% 60 GRAMS FOR DERMATOLOGIC USE ONLY [Suspect]
     Active Substance: KETOCONAZOLE
     Indication: FUNGAL SKIN INFECTION
     Dosage: ?          QUANTITY:1 APPLY CREAM 2X\DAY;?
     Route: 061
     Dates: start: 20210613, end: 20210711
  8. FISH OIL [Concomitant]
     Active Substance: FISH OIL
  9. LISINOPRIL. [Concomitant]
     Active Substance: LISINOPRIL
  10. VIT C WITH ROSE HIPS [Concomitant]
  11. CITRACAL SLOW RELEASE CALCIUM [Concomitant]

REACTIONS (1)
  - Drug hypersensitivity [None]

NARRATIVE: CASE EVENT DATE: 20210616
